FAERS Safety Report 4413945-3 (Version None)
Quarter: 2004Q3

REPORT INFORMATION
  Report Type: 
  Country: None (occurrence: None)
  Receive Date: 20040803
  Receipt Date: 20040722
  Transmission Date: 20050211
  Serious: Yes (Hospitalization, Other)
  Sender: FDA-Public Use
  Company Number: PHNU2004DE02610

PATIENT
  Age: 71 Year
  Sex: Male
  Weight: 70 kg

DRUGS (5)
  1. LOCOL [Suspect]
     Dosage: 80 MG, QD
     Route: 048
  2. PANTOZOL [Suspect]
     Dosage: 20 MG, QD
  3. NOVONORM [Concomitant]
     Dosage: .5 MG, QD
  4. ASPIRIN [Concomitant]
     Dosage: 100 MG, QD
  5. DIOVAN [Concomitant]
     Dosage: 80 MG, QD

REACTIONS (28)
  - ABDOMINAL PAIN [None]
  - AORTIC DISORDER [None]
  - BLOOD ALKALINE PHOSPHATASE INCREASED [None]
  - BLOOD BILIRUBIN INCREASED [None]
  - C-REACTIVE PROTEIN INCREASED [None]
  - CARDIAC FAILURE CONGESTIVE [None]
  - CYANOSIS [None]
  - DEHYDRATION [None]
  - DIARRHOEA [None]
  - ENTERITIS [None]
  - EPSTEIN-BARR VIRUS INFECTION [None]
  - FLATULENCE [None]
  - GAMMA-GLUTAMYLTRANSFERASE INCREASED [None]
  - GASTROENTERITIS ROTAVIRUS [None]
  - GENERAL PHYSICAL HEALTH DETERIORATION [None]
  - GLUTAMATE DEHYDROGENASE INCREASED [None]
  - HEPATIC CIRRHOSIS [None]
  - HEPATIC ENZYME INCREASED [None]
  - HYPONATRAEMIA [None]
  - LIVER DISORDER [None]
  - MITRAL VALVE INCOMPETENCE [None]
  - NAUSEA [None]
  - NEPHROLITHIASIS [None]
  - OCULAR ICTERUS [None]
  - RENAL PAIN [None]
  - SUBILEUS [None]
  - TRICUSPID VALVE INCOMPETENCE [None]
  - VOMITING [None]
